FAERS Safety Report 9743408 (Version 2)
Quarter: 2013Q4

REPORT INFORMATION
  Report Type: Spontaneous
  Country: US (occurrence: US)
  Receive Date: 20131210
  Receipt Date: 20131212
  Transmission Date: 20140711
  Serious: Yes (Other)
  Sender: FDA-Public Use
  Company Number: US-TEVA-380193USA

PATIENT
  Age: 29 Year
  Sex: Female
  Weight: 74 kg

DRUGS (4)
  1. PARAGARD 380A [Suspect]
     Indication: CONTRACEPTION
     Route: 015
     Dates: start: 20130109, end: 20130109
  2. BUTORPHANOL TARTRATE [Concomitant]
     Indication: HEADACHE
  3. LISINOPRIL [Concomitant]
     Indication: HYPERTENSION
  4. TOPAMAX [Concomitant]

REACTIONS (2)
  - Device dislocation [Recovered/Resolved]
  - Pelvic pain [Recovered/Resolved]
